FAERS Safety Report 4436961-4 (Version None)
Quarter: 2004Q3

REPORT INFORMATION
  Report Type: 
  Country: None (occurrence: None)
  Receive Date: 20040830
  Receipt Date: 20031008
  Transmission Date: 20050211
  Serious: No
  Sender: FDA-Public Use
  Company Number: US-GLAXOSMITHKLINE-A0429498A

PATIENT
  Age: 51 Year
  Sex: Male

DRUGS (6)
  1. BECONASE [Suspect]
     Dosage: 1PUFF TWICE PER DAY
     Route: 045
  2. MULTIVITAMIN [Concomitant]
  3. GINSENG [Concomitant]
  4. UNSPECIFIED MEDICATION [Concomitant]
  5. CLARITIN [Concomitant]
  6. FLU SHOT [Concomitant]

REACTIONS (2)
  - ERECTILE DYSFUNCTION [None]
  - INFLUENZA [None]
